FAERS Safety Report 9454004 (Version 1)
Quarter: 2013Q3

REPORT INFORMATION
  Report Type: Spontaneous
  Country: BR (occurrence: BR)
  Receive Date: 20130812
  Receipt Date: 20130812
  Transmission Date: 20140515
  Serious: Yes (Other)
  Sender: FDA-Public Use
  Company Number: BR-BAYER-2013-096453

PATIENT
  Age: 39 Year
  Sex: Female

DRUGS (1)
  1. QLAIRA [Suspect]
     Indication: CONTRACEPTION
     Dosage: UNK
     Route: 048
     Dates: start: 201205, end: 201208

REACTIONS (3)
  - Caesarean section [Recovered/Resolved]
  - Pregnancy on oral contraceptive [Recovered/Resolved]
  - Inappropriate schedule of drug administration [None]
